FAERS Safety Report 13648592 (Version 2)
Quarter: 2017Q3

REPORT INFORMATION
  Report Type: Report from Study
  Country: US (occurrence: US)
  Receive Date: 20170613
  Receipt Date: 20170707
  Transmission Date: 20171127
  Serious: Yes (Other)
  Sender: FDA-Public Use
  Company Number: US-TEVA-777002USA

PATIENT
  Age: 24 Year
  Sex: Male

DRUGS (3)
  1. CLOZAPINE. [Suspect]
     Active Substance: CLOZAPINE
     Dosage: TAKE ONE TABLET AT BED TIME
     Route: 048
  2. CLOZARIL [Concomitant]
     Active Substance: CLOZAPINE
     Dosage: TAKE ONE TABLET TWICE A DAY
     Route: 048
     Dates: end: 20170606
  3. TOPAMAX [Concomitant]
     Active Substance: TOPIRAMATE
     Dosage: TAKE ONE TABLET TWICE A DAY
     Route: 048

REACTIONS (1)
  - Granulocytopenia [Not Recovered/Not Resolved]

NARRATIVE: CASE EVENT DATE: 20170606
